FAERS Safety Report 4315526-9 (Version None)
Quarter: 2004Q1

REPORT INFORMATION
  Report Type: 
  Country: None (occurrence: None)
  Receive Date: 20040309
  Receipt Date: 20040224
  Transmission Date: 20041129
  Serious: Yes (Other)
  Sender: FDA-Public Use
  Company Number: 201696

PATIENT
  Age: 36 Year
  Sex: Female

DRUGS (8)
  1. HERCEPTIN [Suspect]
     Indication: BREAST CANCER METASTATIC
     Dosage: SEE IMAGE
     Route: 042
     Dates: start: 20030604, end: 20030604
  2. HERCEPTIN [Suspect]
     Indication: BREAST CANCER METASTATIC
     Dosage: SEE IMAGE
     Route: 042
     Dates: start: 20030718, end: 20030718
  3. HERCEPTIN [Suspect]
     Indication: BREAST CANCER METASTATIC
     Dosage: SEE IMAGE
     Route: 042
     Dates: start: 20030101
  4. NAVELBINE [Concomitant]
  5. LUPRON [Concomitant]
  6. PAXIL [Concomitant]
  7. CELEBREX [Concomitant]
  8. FASLODEX (FULVESTRANT) [Concomitant]

REACTIONS (13)
  - AMENORRHOEA [None]
  - BREAST CANCER METASTATIC [None]
  - BRONCHOSPASM [None]
  - DISEASE PROGRESSION [None]
  - DRUG HYPERSENSITIVITY [None]
  - DRUG LEVEL BELOW THERAPEUTIC [None]
  - DRUG SPECIFIC ANTIBODY PRESENT [None]
  - ERYTHEMA [None]
  - HOARSENESS [None]
  - OSTEOLYSIS [None]
  - PAIN IN EXTREMITY [None]
  - TACHYCARDIA [None]
  - URTICARIA [None]
